FAERS Safety Report 5658631-7 (Version None)
Quarter: 2008Q1

REPORT INFORMATION
  Report Type: 
  Country: None (occurrence: None)
  Receive Date: 20080310
  Receipt Date: 20070326
  Transmission Date: 20080703
  Serious: No
  Sender: FDA-Public Use
  Company Number: US-BAYER-200710934BCC

PATIENT
  Sex: Female
  Weight: 61 kg

DRUGS (10)
  1. ALEVE [Suspect]
     Indication: ARTHRITIS
     Dosage: TOTAL DAILY DOSE: 220 MG  UNIT DOSE: 220 MG
     Route: 048
  2. ADVIL [Concomitant]
  3. PRIMIDONE [Concomitant]
  4. MOBIC [Concomitant]
  5. PREVACID [Concomitant]
  6. PREMARIN [Concomitant]
  7. SINGULAIR [Concomitant]
  8. ZYRTEC [Concomitant]
  9. VERAPAMIL [Concomitant]
  10. CARDURA [Concomitant]

REACTIONS (1)
  - ARTHRALGIA [None]
